FAERS Safety Report 10257521 (Version 1)
Quarter: 2014Q2

REPORT INFORMATION
  Report Type: Spontaneous
  Country: US (occurrence: US)
  Receive Date: 20140625
  Receipt Date: 20140625
  Transmission Date: 20141212
  Serious: No
  Sender: FDA-Public Use
  Company Number: US-GLAXOSMITHKLINE-A1061354A

PATIENT
  Age: 31 Year
  Sex: Female

DRUGS (6)
  1. VERAMYST [Suspect]
     Indication: ANXIETY
     Dosage: 2PUFF TWICE PER DAY
     Route: 045
  2. CRESTOR [Concomitant]
  3. ZETIA [Concomitant]
  4. ADVAIR [Concomitant]
  5. NEXUM [Concomitant]
  6. VISTARIL [Concomitant]

REACTIONS (4)
  - Rhinitis [Recovered/Resolved]
  - Dizziness [Unknown]
  - Ear infection [Unknown]
  - Off label use [Unknown]
